FAERS Safety Report 8627610 (Version 3)
Quarter: 2013Q2

REPORT INFORMATION
  Report Type: Spontaneous
  Country: US (occurrence: US)
  Receive Date: 20120621
  Receipt Date: 20130402
  Transmission Date: 20140414
  Serious: No
  Sender: FDA-Public Use
  Company Number: US-ASTRAZENECA-2012SE38401

PATIENT
  Age: 48 Year
  Sex: Male
  Weight: 59 kg

DRUGS (2)
  1. BRILINTA [Suspect]
     Indication: STENT PLACEMENT
     Dosage: TWICE DAILY
     Route: 048
     Dates: start: 201205
  2. BABY ASPIRIN [Concomitant]

REACTIONS (10)
  - Feeling abnormal [Unknown]
  - Musculoskeletal discomfort [Unknown]
  - Fatigue [Unknown]
  - Pain [Unknown]
  - Influenza like illness [Unknown]
  - Adverse event [Unknown]
  - Dizziness [Unknown]
  - Headache [Unknown]
  - Nausea [Unknown]
  - Headache [Unknown]
